FAERS Safety Report 9016939 (Version 2)
Quarter: 2013Q1

REPORT INFORMATION
  Report Type: Report from Study
  Country: FR (occurrence: FR)
  Receive Date: 20130117
  Receipt Date: 20130128
  Transmission Date: 20140127
  Serious: Yes (Hospitalization)
  Sender: FDA-Public Use
  Company Number: FR-009507513-1301FRA004947

PATIENT
  Age: 51 Year
  Sex: Male

DRUGS (5)
  1. BOCEPREVIR [Suspect]
     Indication: HEPATITIS C
     Dosage: 800 MG, TID
     Route: 048
     Dates: start: 20111114, end: 20111120
  2. VIRAFERONPEG [Suspect]
     Indication: HEPATITIS C
     Dosage: 100 MICROGRAM, UNK
     Route: 058
     Dates: start: 20111017, end: 20111120
  3. REBETOL [Suspect]
     Indication: HEPATITIS C
     Dosage: 1000 MG, QD
     Route: 048
     Dates: start: 20111017, end: 20111120
  4. ISENTRESS [Concomitant]
     Indication: HIV INFECTION
     Dosage: 400 MG, BID
     Dates: start: 20110228
  5. TRUVADA [Concomitant]
     Indication: HIV INFECTION
     Dosage: UNK
     Dates: start: 20110228

REACTIONS (3)
  - Rectal haemorrhage [Not Recovered/Not Resolved]
  - Haemoptysis [Not Recovered/Not Resolved]
  - Epistaxis [Not Recovered/Not Resolved]
